FAERS Safety Report 7043250-0 (Version None)
Quarter: 2010Q4

REPORT INFORMATION
  Report Type: 
  Country: None (occurrence: None)
  Receive Date: 20101013
  Receipt Date: 20100420
  Transmission Date: 20110411
  Serious: No
  Sender: FDA-Public Use
  Company Number: US-ASTRAZENECA-2010SE17541

PATIENT
  Age: 46 Year
  Sex: Male
  Weight: 79.4 kg

DRUGS (2)
  1. SYMBICORT [Suspect]
     Indication: CHRONIC OBSTRUCTIVE PULMONARY DISEASE
     Dosage: 180 UG TWO PUFFS
     Route: 055
     Dates: start: 20100101, end: 20100401
  2. ADVIL [Concomitant]
     Dosage: AS REQUIRED

REACTIONS (5)
  - ASTHMA [None]
  - DRUG DOSE OMISSION [None]
  - DYSPNOEA [None]
  - NASAL CONGESTION [None]
  - WHEEZING [None]
